FAERS Safety Report 10176482 (Version 3)
Quarter: 2014Q2

REPORT INFORMATION
  Report Type: Spontaneous
  Country: HK (occurrence: HK)
  Receive Date: 20140516
  Receipt Date: 20140527
  Transmission Date: 20141212
  Serious: Yes (Other)
  Sender: FDA-Public Use
  Company Number: HK-MERCK-1405HKG008134

PATIENT
  Sex: 0

DRUGS (3)
  1. JANUVIA [Suspect]
     Dosage: UNK,100 MG
     Route: 048
     Dates: start: 201310, end: 2013
  2. JANUVIA [Suspect]
     Dosage: UNK, 100 MG
     Dates: start: 2013
  3. VITAMIN E [Concomitant]

REACTIONS (3)
  - Carbohydrate antigen 19-9 [Not Recovered/Not Resolved]
  - Carbohydrate antigen 19-9 increased [Not Recovered/Not Resolved]
  - Pancreatitis [Unknown]
